FAERS Safety Report 13802147 (Version 1)
Quarter: 2017Q3

REPORT INFORMATION
  Report Type: Spontaneous
  Country: US (occurrence: US)
  Receive Date: 20170727
  Receipt Date: 20170727
  Transmission Date: 20171127
  Serious: Yes (Other)
  Sender: FDA-Public Use
  Company Number: None

PATIENT
  Age: 51 Year
  Sex: Female
  Weight: 58.5 kg

DRUGS (2)
  1. MULTI VITAMIN AND MINERAL VITAMIN [Concomitant]
     Active Substance: .ALPHA.-TOCOPHEROL ACETATE, D-\ASCORBIC ACID\CALCIUM PANTOTHENATE\FOLIC ACID\MANGANESE\NIACINAMIDE\PYRIDOXINE\RIBOFLAVIN\THIAMINE\VITAMIN A\ZINC OXIDE
  2. XIIDRA [Suspect]
     Active Substance: LIFITEGRAST
     Indication: DRY EYE
     Dosage: ?          QUANTITY:2 DROP(S);?
     Route: 047
     Dates: start: 20170706, end: 20170709

REACTIONS (1)
  - Hypersensitivity [None]

NARRATIVE: CASE EVENT DATE: 20170711
